FAERS Safety Report 5126598-6 (Version None)
Quarter: 2006Q4

REPORT INFORMATION
  Report Type: 
  Country: None (occurrence: None)
  Receive Date: 20061012
  Receipt Date: 20061012
  Transmission Date: 20070319
  Serious: Yes (Hospitalization)
  Sender: FDA-Public Use
  Company Number: None

PATIENT
  Age: 68 Year
  Sex: Female

DRUGS (2)
  1. LABETALOL HCL [Suspect]
     Dosage: 100MG X 1 DOSE IV BOLUS
     Route: 040
     Dates: start: 20060630, end: 20060630
  2. FENTANYL CITRATE [Suspect]
     Dosage: 100MCG X 1 DOSE IV BOLUS
     Route: 040
     Dates: start: 20060630, end: 20060630

REACTIONS (1)
  - DYSPNOEA [None]
